FAERS Safety Report 9210638 (Version 2)
Quarter: 2013Q2

REPORT INFORMATION
  Report Type: Spontaneous
  Country: US (occurrence: US)
  Receive Date: 20130404
  Receipt Date: 20130417
  Transmission Date: 20140414
  Serious: No
  Sender: FDA-Public Use
  Company Number: US-PFIZER INC-2013107154

PATIENT
  Age: 62 Year
  Sex: Female
  Weight: 79.37 kg

DRUGS (3)
  1. ATORVASTATIN CALCIUM [Suspect]
     Indication: BLOOD CHOLESTEROL INCREASED
     Dosage: 20 MG, DAILY
     Dates: start: 2011, end: 2011
  2. TENORMIN [Concomitant]
     Indication: BLOOD PRESSURE ABNORMAL
     Dosage: 50 MG, DAILY
  3. VITAMIN D3 [Concomitant]
     Dosage: 1000 IU, 2X/DAY

REACTIONS (6)
  - Malaise [Recovered/Resolved]
  - Drug intolerance [Recovered/Resolved]
  - Abdominal pain upper [Recovered/Resolved]
  - Headache [Recovered/Resolved]
  - Nausea [Unknown]
  - Discomfort [Unknown]
